FAERS Safety Report 8599382 (Version 3)
Quarter: 2012Q4

REPORT INFORMATION
  Report Type: 
  Country: JP (occurrence: JP)
  Receive Date: 20120605
  Receipt Date: 20121005
  Transmission Date: 20130627
  Serious: Yes (Hospitalization)
  Sender: FDA-Public Use
  Company Number: JP-ROCHE-1073276

PATIENT
  Age: 67 Year
  Sex: Female

DRUGS (7)
  1. ACTEMRA [Suspect]
     Indication: RHEUMATOID ARTHRITIS
     Dosage: Dosage is uncertain.
     Route: 041
     Dates: start: 20100908, end: 2012
  2. ITOROL [Concomitant]
     Route: 048
  3. DIGOXIN [Concomitant]
     Route: 048
  4. AMARYL [Concomitant]
     Route: 048
  5. LUPRAC [Concomitant]
     Route: 048
  6. MUCOSOLVAN [Concomitant]
     Route: 048
  7. GASTER [Concomitant]
     Route: 048

REACTIONS (4)
  - Fall [Unknown]
  - Fracture [Recovered/Resolved]
  - Post procedural infection [Recovered/Resolved]
  - Drug eruption [Unknown]
